FAERS Safety Report 7832214-2 (Version None)
Quarter: 2011Q4

REPORT INFORMATION
  Report Type: 
  Country: None (occurrence: None)
  Receive Date: 20111022
  Receipt Date: 20100525
  Transmission Date: 20120403
  Serious: No
  Sender: FDA-Public Use
  Company Number: US-BAYER-201024176NA

PATIENT
  Age: 45 Year
  Sex: Male
  Weight: 175 kg

DRUGS (2)
  1. CIPROFLOXACIN [Suspect]
  2. ENBREL [Concomitant]
     Dosage: 50 MG, BIW

REACTIONS (2)
  - DIZZINESS [None]
  - ABDOMINAL DISCOMFORT [None]
